FAERS Safety Report 11427249 (Version 4)
Quarter: 2017Q1

REPORT INFORMATION
  Report Type: Report from Study
  Country: US (occurrence: US)
  Receive Date: 20150827
  Receipt Date: 20170202
  Transmission Date: 20170428
  Serious: Yes (Other)
  Sender: FDA-Public Use
  Company Number: US-SA-2014SA123695

PATIENT
  Age: 48 Year
  Sex: Male

DRUGS (1)
  1. FABRAZYME [Suspect]
     Active Substance: AGALSIDASE BETA
     Indication: FABRY^S DISEASE
     Route: 041
     Dates: start: 20031022

REACTIONS (6)
  - Cerebrovascular accident [Recovered/Resolved]
  - Malaise [Recovered/Resolved]
  - Dehydration [Recovered/Resolved]
  - Muscle spasms [Recovered/Resolved]
  - Blood cholesterol increased [Recovering/Resolving]
  - Nasopharyngitis [Recovering/Resolving]

NARRATIVE: CASE EVENT DATE: 201408
